FAERS Safety Report 6194542-9 (Version None)
Quarter: 2009Q2

REPORT INFORMATION
  Report Type: 
  Country: None (occurrence: None)
  Receive Date: 20090519
  Receipt Date: 20090514
  Transmission Date: 20091009
  Serious: Yes (Other)
  Sender: FDA-Public Use
  Company Number: US-TEVA-040213

PATIENT
  Sex: Female

DRUGS (2)
  1. CLARAVIS CAPSULE, ISOTRETINOIN, 20MG, 30MG, 40MG [Suspect]
     Dosage: 20 MG, QD
     Route: 048
     Dates: start: 20090113, end: 20090121
  2. CLARAVIS CAPSULE, ISOTRETINOIN, 20MG, 30MG, 40MG [Suspect]
     Dosage: 40 MG, QD
     Dates: start: 20090113, end: 20090121

REACTIONS (2)
  - SELECTIVE ABORTION [None]
  - UNINTENDED PREGNANCY [None]
